FAERS Safety Report 18663981 (Version 3)
Quarter: 2024Q2

REPORT INFORMATION
  Report Type: Spontaneous
  Country: JP (occurrence: JP)
  Receive Date: 20201224
  Receipt Date: 20240621
  Transmission Date: 20240716
  Serious: Yes (Other)
  Sender: FDA-Public Use
  Company Number: JP-BOEHRINGERINGELHEIM-2020-BI-071276

PATIENT
  Age: 70 Year
  Sex: Female

DRUGS (13)
  1. GILOTRIF [Suspect]
     Active Substance: AFATINIB
     Indication: Neuroendocrine carcinoma
     Route: 048
  2. GILOTRIF [Suspect]
     Active Substance: AFATINIB
     Indication: Adenocarcinoma
     Route: 048
  3. GILOTRIF [Suspect]
     Active Substance: AFATINIB
     Indication: EGFR gene mutation
  4. ERLOTINIB HYDROCHLORIDE [Suspect]
     Active Substance: ERLOTINIB HYDROCHLORIDE
     Indication: Product used for unknown indication
     Route: 065
  5. ERLOTINIB HYDROCHLORIDE [Suspect]
     Active Substance: ERLOTINIB HYDROCHLORIDE
     Route: 065
  6. ERLOTINIB HYDROCHLORIDE [Suspect]
     Active Substance: ERLOTINIB HYDROCHLORIDE
     Route: 065
  7. BEVACIZUMAB [Suspect]
     Active Substance: BEVACIZUMAB
     Indication: Product used for unknown indication
     Route: 065
  8. CISPLATIN [Concomitant]
     Active Substance: CISPLATIN
     Indication: Neuroendocrine carcinoma
     Route: 065
  9. CISPLATIN [Concomitant]
     Active Substance: CISPLATIN
     Indication: Adenocarcinoma
  10. CISPLATIN [Concomitant]
     Active Substance: CISPLATIN
     Indication: EGFR gene mutation
  11. VINORELBINE TARTRATE [Concomitant]
     Active Substance: VINORELBINE TARTRATE
     Indication: Neuroendocrine carcinoma
     Route: 065
  12. VINORELBINE TARTRATE [Concomitant]
     Active Substance: VINORELBINE TARTRATE
     Indication: Adenocarcinoma
  13. VINORELBINE TARTRATE [Concomitant]
     Active Substance: VINORELBINE TARTRATE
     Indication: EGFR gene mutation

REACTIONS (10)
  - Monoplegia [Recovering/Resolving]
  - Brain oedema [Unknown]
  - Central nervous system lesion [Unknown]
  - Disease progression [Unknown]
  - Dermatitis acneiform [Recovered/Resolved]
  - Paronychia [Unknown]
  - Dermatitis acneiform [Recovered/Resolved]
  - Decreased appetite [Unknown]
  - Hypertension [Unknown]
  - Paronychia [Recovered/Resolved]
